FAERS Safety Report 21343235 (Version 1)
Quarter: 2022Q3

REPORT INFORMATION
  Report Type: Report from Study
  Country: US (occurrence: US)
  Receive Date: 20220916
  Receipt Date: 20220916
  Transmission Date: 20221027
  Serious: Yes (Death, Life-Threatening, Other)
  Sender: FDA-Public Use
  Company Number: US-GSK-US2022GSK132761

PATIENT

DRUGS (2)
  1. DILTIAZEM HYDROCHLORIDE [Suspect]
     Active Substance: DILTIAZEM HYDROCHLORIDE
     Indication: Product used for unknown indication
     Dosage: UNK
  2. PROPAFENONE [Suspect]
     Active Substance: PROPAFENONE
     Indication: Product used for unknown indication
     Dosage: UNK

REACTIONS (13)
  - Toxicity to various agents [Fatal]
  - Hypotension [Unknown]
  - Bradycardia [Unknown]
  - Ventricular arrhythmia [Unknown]
  - Electrocardiogram QRS complex prolonged [Unknown]
  - Depressed level of consciousness [Unknown]
  - Coma [Unknown]
  - Metabolic acidosis [Unknown]
  - Anion gap [Unknown]
  - Hepatotoxicity [Unknown]
  - Pancreatitis [Unknown]
  - Intestinal ischaemia [Unknown]
  - Acute kidney injury [Unknown]
